FAERS Safety Report 7179330-9 (Version None)
Quarter: 2010Q4

REPORT INFORMATION
  Report Type: 
  Country: None (occurrence: None)
  Receive Date: 20101208
  Receipt Date: 20101123
  Transmission Date: 20110411
  Serious: Yes (Hospitalization)
  Sender: FDA-Public Use
  Company Number: 020791

PATIENT
  Sex: Female

DRUGS (2)
  1. KEPPRA [Suspect]
     Indication: PARTIAL SEIZURES
     Dosage: 1000 MG BID ORAL
     Route: 048
     Dates: start: 20100729
  2. ORAL CONTRACEPTIVE NOS (ORAL CONTRACEPTIVE) [Suspect]
     Dosage: ORAL
     Route: 048
     Dates: end: 20100901

REACTIONS (10)
  - BLOOD CALCIUM INCREASED [None]
  - BLOOD POTASSIUM DECREASED [None]
  - FIBRIN D DIMER INCREASED [None]
  - HAEMOGLOBIN DECREASED [None]
  - PLEURAL EFFUSION [None]
  - PNEUMONIA [None]
  - PULMONARY EMBOLISM [None]
  - PULMONARY INFARCTION [None]
  - SINUS TACHYCARDIA [None]
  - WHITE BLOOD CELL COUNT INCREASED [None]
